FAERS Safety Report 7121304-8 (Version None)
Quarter: 2010Q4

REPORT INFORMATION
  Report Type: 
  Country: None (occurrence: None)
  Receive Date: 20101122
  Receipt Date: 20101122
  Transmission Date: 20110411
  Serious: Yes (Hospitalization)
  Sender: FDA-Public Use
  Company Number: None

PATIENT
  Sex: Male
  Weight: 86.2 kg

DRUGS (7)
  1. EXENATIDE 5 MCG/0.02 ML ELI LILLY [Suspect]
     Indication: TYPE 2 DIABETES MELLITUS
     Dosage: 5 MCG BID SQ
     Route: 058
     Dates: start: 20101028, end: 20101115
  2. NIACIN -NIASPAN ER [Concomitant]
  3. LIPITOR [Concomitant]
  4. FOSINOPRIL SODIUM [Concomitant]
  5. HYDROCHLOROTHIAZIDE [Concomitant]
  6. INSULIN GLARGINE -LANTUS SOLOSTAR PEN [Concomitant]
  7. INSULIN LISPRO -HUMALOG KWIKPEN [Concomitant]

REACTIONS (1)
  - PANCREATITIS [None]
